FAERS Safety Report 9523145 (Version 2)
Quarter: 2013Q4

REPORT INFORMATION
  Report Type: Spontaneous
  Country: CN (occurrence: CN)
  Receive Date: 20130913
  Receipt Date: 20131003
  Transmission Date: 20140711
  Serious: Yes (Life-Threatening, Other)
  Sender: FDA-Public Use
  Company Number: CN-JNJFOC-20130904982

PATIENT
  Sex: 0

DRUGS (4)
  1. DOXORUBICIN [Suspect]
     Indication: PLASMA CELL MYELOMA
     Route: 042
  2. DOXORUBICIN [Suspect]
     Indication: HEPATOCELLULAR CARCINOMA
     Route: 042
  3. DOXORUBICIN [Suspect]
     Indication: METASTATIC NEOPLASM
     Route: 042
  4. DOXORUBICIN [Suspect]
     Indication: NON-HODGKIN^S LYMPHOMA
     Route: 042

REACTIONS (25)
  - Infection [Unknown]
  - Alopecia [Unknown]
  - Palmar-plantar erythrodysaesthesia syndrome [Unknown]
  - Anaemia [Unknown]
  - Leukopenia [Unknown]
  - Neutropenia [Unknown]
  - Thrombocytopenia [Unknown]
  - Haemoglobin decreased [Unknown]
  - Hepatic function abnormal [Unknown]
  - Anaphylactic shock [Unknown]
  - Neurotoxicity [Unknown]
  - Fatigue [Unknown]
  - Nasopharyngitis [Unknown]
  - Nausea [Unknown]
  - Vomiting [Unknown]
  - Erythema [Unknown]
  - Gingival ulceration [Unknown]
  - Cardiotoxicity [Unknown]
  - Renal impairment [Unknown]
  - Dyspnoea [Unknown]
  - Oedema [Unknown]
  - Constipation [Unknown]
  - Pain [Unknown]
  - Pyrexia [Unknown]
  - Diarrhoea [Unknown]
